FAERS Safety Report 9130957 (Version 1)
Quarter: 2013Q1

REPORT INFORMATION
  Report Type: Spontaneous
  Country: GB (occurrence: GB)
  Receive Date: 20130301
  Receipt Date: 20130301
  Transmission Date: 20140127
  Serious: Yes (Other)
  Sender: FDA-Public Use
  Company Number: GB-JNJFOC-20130214199

PATIENT
  Sex: Male

DRUGS (10)
  1. GRANULOCYTE COLONY-STIMULATING FACTOR (GCSF) [Concomitant]
     Indication: PALLIATIVE CARE
     Route: 065
  2. DOXORUBICIN [Suspect]
     Indication: EWING^S SARCOMA
     Dosage: OVER 2 DAYS FOR 14 DAY CYCLE
     Route: 042
  3. DOXORUBICIN [Suspect]
     Indication: EWING^S SARCOMA
     Dosage: 20% DOSE REDUCTION AT CYCLE 7, 9 AND 11
     Route: 042
  4. VINCRISTINE [Suspect]
     Indication: EWING^S SARCOMA
     Dosage: 1.4 MG/M2, MAXIMUN 2 MG, OVER 2 DAYS
     Route: 065
  5. CYCLOPHOSPHAMIDE [Suspect]
     Indication: EWING^S SARCOMA
     Dosage: OVER 2 DAYS OF 14 DAY CYCLE
     Route: 065
  6. CYCLOPHOSPHAMIDE [Suspect]
     Indication: EWING^S SARCOMA
     Dosage: 20% DOSE REDUCTION AT CYCLE 7, 9 AND 11
     Route: 065
  7. IFOSFAMIDE [Suspect]
     Indication: EWING^S SARCOMA
     Dosage: 20% OF DOSE REDUCTION AT CYCLE 10 AND CONTINUED FOR CYCLE 12
     Route: 065
  8. IFOSFAMIDE [Suspect]
     Indication: EWING^S SARCOMA
     Dosage: FRACTIONATED OVER 5 DAYS
     Route: 065
  9. ETOPOSIDE [Suspect]
     Indication: EWING^S SARCOMA
     Dosage: 20% OF DOSE REDUCTION AT CYCLE 8 AND ADDITIONAL 20% AT CYCLE 12
     Route: 065
  10. ETOPOSIDE [Suspect]
     Indication: EWING^S SARCOMA
     Dosage: FRACTIONATED OVER 5 DAYS
     Route: 065

REACTIONS (4)
  - Febrile neutropenia [Unknown]
  - Implant site infection [Unknown]
  - Off label use [Unknown]
  - Fatigue [Unknown]
